FAERS Safety Report 13974063 (Version 1)
Quarter: 2017Q3

REPORT INFORMATION
  Report Type: Spontaneous
  Country: FR (occurrence: FR)
  Receive Date: 20170915
  Receipt Date: 20170915
  Transmission Date: 20171128
  Serious: Yes (Other)
  Sender: FDA-Public Use
  Company Number: FR-MERCK KGAA-2026390

PATIENT
  Age: 35 Year
  Sex: Female

DRUGS (1)
  1. NOVOTHYROX [Suspect]
     Active Substance: LEVOTHYROXINE SODIUM
     Indication: THYROIDECTOMY
     Route: 048

REACTIONS (8)
  - Blood thyroid stimulating hormone increased [Unknown]
  - Vertigo [Unknown]
  - Asthenia [Unknown]
  - Hunger [Unknown]
  - Diffuse alopecia [Unknown]
  - Weight increased [Unknown]
  - Acne [Unknown]
  - Insomnia [Unknown]

NARRATIVE: CASE EVENT DATE: 201706
